FAERS Safety Report 19350589 (Version 1)
Quarter: 2021Q2

REPORT INFORMATION
  Report Type: Other
  Country: US (occurrence: US)
  Receive Date: 20210531
  Receipt Date: 20210531
  Transmission Date: 20210717
  Serious: Yes (Other)
  Sender: FDA-Public Use
  Company Number: US-ROCHE-2835551

PATIENT
  Age: 47 Year
  Sex: Female
  Weight: 77.18 kg

DRUGS (9)
  1. SUMATRIPTAN. [Concomitant]
     Active Substance: SUMATRIPTAN
  2. CITALOPRAM [Concomitant]
     Active Substance: CITALOPRAM HYDROBROMIDE
  3. BOTOX [Concomitant]
     Active Substance: ONABOTULINUMTOXINA
  4. OCREVUS [Suspect]
     Active Substance: OCRELIZUMAB
     Dosage: INFUSE 300MG DAY 1: THEN 300MG DAY 15
     Route: 042
  5. OCREVUS [Suspect]
     Active Substance: OCRELIZUMAB
     Route: 042
  6. MELOXICAM. [Concomitant]
     Active Substance: MELOXICAM
  7. METOPROLOL. [Concomitant]
     Active Substance: METOPROLOL
  8. AJOVY [Concomitant]
     Active Substance: FREMANEZUMAB-VFRM
  9. OCREVUS [Suspect]
     Active Substance: OCRELIZUMAB
     Indication: RELAPSING-REMITTING MULTIPLE SCLEROSIS
     Route: 042
     Dates: start: 201910

REACTIONS (5)
  - Mouth haemorrhage [Recovered/Resolved]
  - Tongue thrust [Unknown]
  - COVID-19 [Recovered/Resolved]
  - Urinary hesitation [Unknown]
  - Multiple sclerosis relapse [Not Recovered/Not Resolved]

NARRATIVE: CASE EVENT DATE: 202101
